FAERS Safety Report 25676185 (Version 1)
Quarter: 2025Q3

REPORT INFORMATION
  Report Type: Spontaneous
  Country: US (occurrence: US)
  Receive Date: 20250813
  Receipt Date: 20250813
  Transmission Date: 20251021
  Serious: Yes (Other)
  Sender: ANI
  Company Number: US-ANIPHARMA-2025-US-035558

PATIENT
  Sex: Female

DRUGS (10)
  1. ANASTROZOLE [Suspect]
     Active Substance: ANASTROZOLE
     Indication: Breast cancer
  2. TAXOL [Suspect]
     Active Substance: PACLITAXEL
  3. IBRANCE [Suspect]
     Active Substance: PALBOCICLIB
     Route: 048
     Dates: start: 20250213
  4. ADRIAMYCIN [Suspect]
     Active Substance: DOXORUBICIN HYDROCHLORIDE
  5. ABEMACICLIB [Concomitant]
     Active Substance: ABEMACICLIB
  6. MARINOL [Concomitant]
     Active Substance: DRONABINOL
  7. ZOLEDRONIC ACID [Concomitant]
     Active Substance: ZOLEDRONIC ACID
  8. FULVESTRANT INJ [Concomitant]
  9. NAPROXEN [Concomitant]
     Active Substance: NAPROXEN
  10. LETROZOLE [Suspect]
     Active Substance: LETROZOLE

REACTIONS (2)
  - Osteoarthritis [Unknown]
  - Disease progression [Unknown]
